FAERS Safety Report 9445975 (Version 1)
Quarter: 2013Q3

REPORT INFORMATION
  Report Type: Spontaneous
  Country: US (occurrence: US)
  Receive Date: 20130807
  Receipt Date: 20130807
  Transmission Date: 20140515
  Serious: Yes (Other)
  Sender: FDA-Public Use
  Company Number: US-ASTRAZENECA-2013SE58555

PATIENT
  Sex: Male

DRUGS (5)
  1. BRILINTA [Suspect]
     Indication: ACUTE MYOCARDIAL INFARCTION
     Route: 048
     Dates: start: 201303
  2. BRILINTA [Suspect]
     Indication: ACUTE MYOCARDIAL INFARCTION
     Route: 048
     Dates: start: 201303
  3. CLOPIDIGREL [Concomitant]
     Indication: ACUTE MYOCARDIAL INFARCTION
     Dates: start: 201303, end: 201303
  4. CLOPIDIGREL [Concomitant]
     Indication: ACUTE MYOCARDIAL INFARCTION
     Dates: start: 201303, end: 201303
  5. ASPIRIN [Concomitant]
     Indication: ACUTE MYOCARDIAL INFARCTION
     Dates: start: 201303

REACTIONS (1)
  - Gastrointestinal haemorrhage [Recovered/Resolved]
